FAERS Safety Report 20808447 (Version 2)
Quarter: 2022Q2

REPORT INFORMATION
  Report Type: Other
  Country: SZ (occurrence: SZ)
  Receive Date: 20220510
  Receipt Date: 20220521
  Transmission Date: 20220721
  Serious: Yes (Congenital Anomaly, Other)
  Sender: FDA-Public Use
  Company Number: SZ-MACLEODS PHARMACEUTICALS US LTD-MAC2022035492

PATIENT

DRUGS (4)
  1. LAMIVUDINE [Suspect]
     Active Substance: LAMIVUDINE
     Indication: Product used for unknown indication
     Dosage: UNK,(1 COURSE AND DURING FIRST TRIMESTER)
     Route: 064
  2. TENOFOVIR [Suspect]
     Active Substance: TENOFOVIR
     Indication: Product used for unknown indication
     Dosage: UNK,(1 COURSE AND DURING FIRST TRIMESTER)
     Route: 064
  3. RETROVIR [Suspect]
     Active Substance: ZIDOVUDINE
     Indication: Product used for unknown indication
     Dosage: 2 UNK,MG/KG/HR,(1 COURSE AND DURING SECOND TRIMESTER), (WEEK BEGAN 26 AND WEEK ENDED 26)
     Route: 064
  4. LOPINAVIR\RITONAVIR [Suspect]
     Active Substance: LOPINAVIR\RITONAVIR
     Indication: Product used for unknown indication
     Dosage: UNK,(1 COURSE)
     Route: 064

REACTIONS (9)
  - Meningomyelocele [Unknown]
  - Arnold-Chiari malformation [Unknown]
  - Macrocephaly [Unknown]
  - Neonatal respiratory distress syndrome [Unknown]
  - Brain herniation [Unknown]
  - Necrotising colitis [Recovered/Resolved]
  - Premature baby [Unknown]
  - Hyperbilirubinaemia neonatal [Unknown]
  - Foetal exposure during pregnancy [Unknown]
